FAERS Safety Report 15705632 (Version 1)
Quarter: 2018Q4

REPORT INFORMATION
  Report Type: Other
  Country: CA (occurrence: CA)
  Receive Date: 20181210
  Receipt Date: 20181210
  Transmission Date: 20190205
  Serious: Yes (Death, Life-Threatening, Disabling)
  Sender: FDA-Public Use
  Company Number: CA-HLSUS-2018-CA-001579

PATIENT
  Age: 67 Year
  Sex: Male
  Weight: 70.5 kg

DRUGS (17)
  1. FLOMAX [Concomitant]
     Active Substance: TAMSULOSIN HYDROCHLORIDE
     Dosage: 0.4 MG DAILY
  2. LIPITOR [Concomitant]
     Active Substance: ATORVASTATIN CALCIUM
     Dosage: 10 MG DAILY
     Route: 048
     Dates: start: 2018, end: 20181010
  3. COGENTIN [Concomitant]
     Active Substance: BENZTROPINE MESYLATE
     Dosage: 1 MG TID PRN
     Dates: start: 20180815
  4. CLOZARIL [Suspect]
     Active Substance: CLOZAPINE
     Indication: SCHIZOPHRENIA
     Dosage: 250-275 MG BID
     Route: 048
     Dates: start: 19970112, end: 20181010
  5. FOLIC ACID. [Concomitant]
     Active Substance: FOLIC ACID
     Dosage: 1 MG DAILY
     Dates: start: 20180217
  6. DEXILANT [Concomitant]
     Active Substance: DEXLANSOPRAZOLE
     Dosage: 60 MG DAILY
  7. LOPRESSOR [Concomitant]
     Active Substance: METOPROLOL TARTRATE
     Dosage: 12.5 MG TWICE DAILY
     Route: 048
     Dates: start: 2018, end: 20181010
  8. SEROQUEL [Concomitant]
     Active Substance: QUETIAPINE FUMARATE
     Dosage: 200 MG HS + 12.5 MG DAILY
     Route: 048
     Dates: start: 2018, end: 20181010
  9. GLUCOPHAGE [Concomitant]
     Active Substance: METFORMIN HYDROCHLORIDE
     Dosage: 250 MG TWICE DAILY ON ADMISSION
  10. SERC [Concomitant]
     Dosage: 16 MG TID PRN
  11. NICODERM CQ [Concomitant]
     Active Substance: NICOTINE
     Dosage: 7 MG DAILY
     Dates: start: 20180322, end: 20181008
  12. ARICEPT [Concomitant]
     Active Substance: DONEPEZIL HYDROCHLORIDE
     Dosage: 5 MG DAILY
     Dates: start: 2018, end: 20181010
  13. D-TABS [Concomitant]
     Active Substance: CHOLECALCIFEROL
     Dosage: 10000 U 1 PER WEEK
  14. ATIVAN [Concomitant]
     Active Substance: LORAZEPAM
     Dosage: 1 MG TWICE DAILY
     Route: 048
     Dates: start: 2018, end: 20181005
  15. SYNTHROID [Concomitant]
     Active Substance: LEVOTHYROXINE SODIUM
     Dosage: 0.05 MG DAILY ON ADMISSION
  16. VITAMIN B12 [Concomitant]
     Active Substance: CYANOCOBALAMIN
     Dosage: 1200 MCG DAILY
     Dates: start: 20180217
  17. PLAVIX [Concomitant]
     Active Substance: CLOPIDOGREL BISULFATE
     Dosage: 75 MG DAILY
     Route: 048
     Dates: start: 2018, end: 20181010

REACTIONS (11)
  - Tachycardia [None]
  - Blood creatine phosphokinase increased [None]
  - Blood magnesium increased [None]
  - Blood sodium increased [None]
  - Seizure [Recovered/Resolved]
  - White blood cell count decreased [None]
  - Death [Fatal]
  - Fall [Recovered/Resolved with Sequelae]
  - Dizziness [Recovered/Resolved with Sequelae]
  - Parkinsonism [None]
  - Haemoglobin decreased [None]

NARRATIVE: CASE EVENT DATE: 20180319
